FAERS Safety Report 10564714 (Version 1)
Quarter: 2014Q4

REPORT INFORMATION
  Report Type: Spontaneous
  Country: IT (occurrence: IT)
  Receive Date: 20141105
  Receipt Date: 20141105
  Transmission Date: 20150529
  Serious: Yes (Other)
  Sender: FDA-Public Use
  Company Number: PHHY2014IT143111

PATIENT
  Age: 65 Year
  Sex: Male

DRUGS (1)
  1. PERINDOPRIL+INDAPAMIDE [Suspect]
     Active Substance: INDAPAMIDE\PERINDOPRIL
     Indication: PRODUCT USED FOR UNKNOWN INDICATION
     Route: 065

REACTIONS (6)
  - Rash papular [Unknown]
  - Urticaria [Unknown]
  - Rash erythematous [Unknown]
  - Eosinophilia [Unknown]
  - Drug reaction with eosinophilia and systemic symptoms [Unknown]
  - Hepatic function abnormal [Unknown]
